FAERS Safety Report 4950736-9 (Version None)
Quarter: 2006Q1

REPORT INFORMATION
  Report Type: 
  Country: None (occurrence: None)
  Receive Date: 20060321
  Receipt Date: 20060321
  Transmission Date: 20060701
  Serious: Yes (Other)
  Sender: FDA-Public Use
  Company Number: None

PATIENT
  Age: 39 Year
  Sex: Female
  Weight: 61.6892 kg

DRUGS (3)
  1. PAROXETINE HCL [Suspect]
     Indication: AGORAPHOBIA
     Dosage: 5/8 TAB (12.5 MG) PO QHS
     Route: 048
     Dates: start: 20051101, end: 20051201
  2. PAROXETINE HCL [Suspect]
     Indication: MAJOR DEPRESSION
     Dosage: 5/8 TAB (12.5 MG) PO QHS
     Route: 048
     Dates: start: 20051101, end: 20051201
  3. PAROXETINE HCL [Suspect]
     Indication: PANIC DISORDER
     Dosage: 5/8 TAB (12.5 MG) PO QHS
     Route: 048
     Dates: start: 20051101, end: 20051201

REACTIONS (8)
  - ANXIETY [None]
  - BLOOD PRESSURE INCREASED [None]
  - DISEASE RECURRENCE [None]
  - DIZZINESS [None]
  - INSOMNIA [None]
  - PANIC ATTACK [None]
  - TACHYCARDIA [None]
  - THERAPEUTIC RESPONSE UNEXPECTED WITH DRUG SUBSTITUTION [None]
